FAERS Safety Report 8368071-8 (Version None)
Quarter: 2012Q2

REPORT INFORMATION
  Report Type: 
  Country: None (occurrence: None)
  Receive Date: 20120517
  Receipt Date: 20120514
  Transmission Date: 20120825
  Serious: Yes (Hospitalization)
  Sender: FDA-Public Use
  Company Number: US-PFIZER INC-2012105302

PATIENT
  Sex: Female
  Weight: 54 kg

DRUGS (1)
  1. GENOTROPIN [Suspect]
     Indication: GROWTH HORMONE DEFICIENCY
     Dosage: 1.4 MG, 1X/DAY
     Route: 058
     Dates: start: 20091201, end: 20120401

REACTIONS (3)
  - VISION BLURRED [None]
  - MIGRAINE [None]
  - HEADACHE [None]
